FAERS Safety Report 18043592 (Version 1)
Quarter: 2020Q3

REPORT INFORMATION
  Report Type: Spontaneous
  Country: US (occurrence: US)
  Receive Date: 20200718
  Receipt Date: 20200718
  Transmission Date: 20201103
  Serious: Yes (Other)
  Sender: FDA-Public Use
  Company Number: None

PATIENT
  Age: 33 Year
  Sex: Male
  Weight: 87.75 kg

DRUGS (2)
  1. BUPROPION XL [Concomitant]
     Active Substance: BUPROPION
  2. XTRACARE HAND SANITIZER MOISURIZE WITH VITAMIN E AND ALOE [Suspect]
     Active Substance: ALCOHOL
     Indication: INFECTION PROPHYLAXIS
     Dosage: ?          QUANTITY:.5 OUNCE(S);?
     Route: 061

REACTIONS (2)
  - Application site exfoliation [None]
  - Application site vesicles [None]

NARRATIVE: CASE EVENT DATE: 20200702
